FAERS Safety Report 11794336 (Version 1)
Quarter: 2015Q4

REPORT INFORMATION
  Report Type: Spontaneous
  Country: JP (occurrence: JP)
  Receive Date: 20151202
  Receipt Date: 20151202
  Transmission Date: 20160305
  Serious: Yes (Hospitalization)
  Sender: FDA-Public Use
  Company Number: JP-PFIZER INC-2015401956

PATIENT
  Age: 67 Year
  Sex: Female
  Weight: 54 kg

DRUGS (3)
  1. LYRICA [Suspect]
     Active Substance: PREGABALIN
     Dosage: 25 MG, 2X/DAY
     Route: 048
  2. TEPRENONE [Concomitant]
     Active Substance: TEPRENONE
     Route: 065
  3. CELECOX [Concomitant]
     Active Substance: CELECOXIB
     Route: 065

REACTIONS (2)
  - Liver disorder [Recovering/Resolving]
  - Liver disorder [Unknown]
